FAERS Safety Report 12137179 (Version 1)
Quarter: 2016Q1

REPORT INFORMATION
  Report Type: Spontaneous
  Country: NL (occurrence: NL)
  Receive Date: 20160302
  Receipt Date: 20160302
  Transmission Date: 20160526
  Serious: Yes (Hospitalization)
  Sender: FDA-Public Use
  Company Number: NL-CONCORDIA PHARMACEUTICALS INC.-CO-PL-NL-2016-068

PATIENT
  Age: 70 Year
  Sex: Female

DRUGS (12)
  1. PLAQUENIL [Suspect]
     Active Substance: HYDROXYCHLOROQUINE SULFATE
     Indication: PRODUCT USED FOR UNKNOWN INDICATION
     Route: 065
     Dates: start: 20110601
  2. METHOTREXATE [Suspect]
     Active Substance: METHOTREXATE
     Route: 042
     Dates: start: 20120920
  3. METHOTREXATE [Suspect]
     Active Substance: METHOTREXATE
     Route: 042
     Dates: start: 20120926
  4. SIMVASTATIN. [Concomitant]
     Active Substance: SIMVASTATIN
  5. METHOTREXATE [Suspect]
     Active Substance: METHOTREXATE
     Indication: RHEUMATOID ARTHRITIS
     Route: 042
     Dates: start: 20101207
  6. CHLORTHALIDONE. [Concomitant]
     Active Substance: CHLORTHALIDONE
     Dates: start: 20100914
  7. ALLOPURINOL. [Concomitant]
     Active Substance: ALLOPURINOL
  8. METHOTREXATE [Suspect]
     Active Substance: METHOTREXATE
     Route: 042
     Dates: start: 20120726
  9. METHOTREXATE [Suspect]
     Active Substance: METHOTREXATE
     Route: 042
     Dates: start: 20121018, end: 20121018
  10. ATACAND [Concomitant]
     Active Substance: CANDESARTAN CILEXETIL
  11. IRBESARTAN. [Concomitant]
     Active Substance: IRBESARTAN
     Dates: start: 20100914
  12. METHOTREXATE [Suspect]
     Active Substance: METHOTREXATE
     Dates: start: 20120823

REACTIONS (1)
  - Urosepsis [None]

NARRATIVE: CASE EVENT DATE: 20121127
